FAERS Safety Report 9289170 (Version 5)
Quarter: 2015Q1

REPORT INFORMATION
  Report Type: Spontaneous
  Country: DK (occurrence: DK)
  Receive Date: 20130508
  Receipt Date: 20150106
  Transmission Date: 20150721
  Serious: Yes (Other)
  Sender: FDA-Public Use
  Company Number: DK-BAXTER-2013BAX016993

PATIENT
  Age: 63 Year
  Sex: Female

DRUGS (5)
  1. FASLODEX [Suspect]
     Active Substance: FULVESTRANT
     Indication: BREAST CANCER RECURRENT
     Dosage: 250 MG/5 ML
     Route: 065
  2. SENDOXAN [Suspect]
     Active Substance: CYCLOPHOSPHAMIDE
     Indication: BREAST CANCER
     Route: 065
     Dates: start: 2009
  3. NAVELBINE [Suspect]
     Active Substance: VINORELBINE TARTRATE
     Indication: BREAST CANCER
     Route: 065
     Dates: start: 2009
  4. HERCEPTIN [Suspect]
     Active Substance: TRASTUZUMAB
     Indication: BREAST CANCER
     Route: 042
     Dates: start: 2006, end: 201303
  5. HERCEPTIN [Suspect]
     Active Substance: TRASTUZUMAB
     Route: 058

REACTIONS (9)
  - Stress [Unknown]
  - Visual impairment [Not Recovered/Not Resolved]
  - Pain in extremity [Unknown]
  - Arthralgia [Unknown]
  - Vitreous detachment [Unknown]
  - Sensory disturbance [Unknown]
  - Visual field defect [Not Recovered/Not Resolved]
  - Ocular hypertension [Recovering/Resolving]
  - Photopsia [Unknown]

NARRATIVE: CASE EVENT DATE: 20121011
